FAERS Safety Report 5826397-3 (Version None)
Quarter: 2008Q3

REPORT INFORMATION
  Report Type: 
  Country: None (occurrence: None)
  Receive Date: 20080729
  Receipt Date: 20080718
  Transmission Date: 20090109
  Serious: Yes (Death)
  Sender: FDA-Public Use
  Company Number: US-BOEHRINGER INGELHEIM GMBH, GERMANY-2008-DE-04227GD

PATIENT
  Sex: Male
  Weight: 4.37 kg

DRUGS (18)
  1. IPRATROPIUM BROMIDE [Suspect]
     Route: 055
  2. RANITIDINE HCL [Suspect]
  3. MORPHINE [Suspect]
  4. ACETAMINOPHEN [Suspect]
  5. TOBRAMYCIN [Suspect]
     Indication: PNEUMONIA BACTERIAL
     Dosage: 80 MG ON THE 1ST DAY, 160 MG EACH ON THE 2 FOLLOWING DAYS
     Route: 055
  6. TOBRAMYCIN [Suspect]
     Route: 055
  7. VANCOMYCIN HCL [Suspect]
     Indication: PNEUMONIA BACTERIAL
  8. CEFEPIME [Suspect]
     Indication: PNEUMONIA BACTERIAL
  9. ALBUTEROL [Suspect]
     Route: 055
  10. MIDAZOLAM HCL [Suspect]
  11. AMOXICILLIN [Suspect]
  12. CALCITRIOL [Suspect]
  13. CHLORAL HYDRATE [Suspect]
  14. CHLOROTHIAZIDE [Suspect]
  15. METOCLOPRAMIDE [Suspect]
  16. SPIRONOLACTONE [Suspect]
  17. DIPHENHYDRAMINE HCL [Suspect]
  18. FUROSEMIDE [Suspect]

REACTIONS (2)
  - BRONCHOPNEUMONIA [None]
  - SEPSIS [None]
